FAERS Safety Report 25873383 (Version 1)
Quarter: 2025Q4

REPORT INFORMATION
  Report Type: Spontaneous
  Country: US (occurrence: US)
  Receive Date: 20251002
  Receipt Date: 20251002
  Transmission Date: 20260118
  Serious: No
  Sender: NOBELPHARMA
  Company Number: US-NPA-2025-AER-01650

PATIENT
  Age: 15 Year
  Sex: Female

DRUGS (1)
  1. HYFTOR [Suspect]
     Active Substance: SIROLIMUS
     Indication: Tuberous sclerosis complex
     Dates: start: 20250616

REACTIONS (1)
  - Rash [Unknown]
